FAERS Safety Report 8496464-7 (Version None)
Quarter: 2012Q2

REPORT INFORMATION
  Report Type: 
  Country: None (occurrence: None)
  Receive Date: 20120405
  Receipt Date: 20100112
  Transmission Date: 20120825
  Serious: Yes (Other)
  Sender: FDA-Public Use
  Company Number: PHHY2010US01895

PATIENT
  Age: 76 Year
  Sex: Female

DRUGS (2)
  1. RECLAST [Suspect]
     Dosage: UNK, INFUSION
     Dates: start: 20091214
  2. DIOVAN [Concomitant]

REACTIONS (10)
  - OEDEMA [None]
  - NAUSEA [None]
  - PAIN IN EXTREMITY [None]
  - MALAISE [None]
  - ARTHRALGIA [None]
  - ARTHRITIS [None]
  - BACK DISORDER [None]
  - INFLUENZA LIKE ILLNESS [None]
  - MUSCULOSKELETAL STIFFNESS [None]
  - GAIT DISTURBANCE [None]
